FAERS Safety Report 6861931-6 (Version None)
Quarter: 2010Q3

REPORT INFORMATION
  Report Type: 
  Country: None (occurrence: None)
  Receive Date: 20100720
  Receipt Date: 20100720
  Transmission Date: 20110219
  Serious: Yes (Other)
  Sender: FDA-Public Use
  Company Number: None

PATIENT
  Age: 82 Year
  Sex: Female
  Weight: 58.0604 kg

DRUGS (1)
  1. BOTOX [Suspect]
     Indication: FACIAL SPASM

REACTIONS (5)
  - EYE DISORDER [None]
  - FEEDING DISORDER [None]
  - INCORRECT DOSE ADMINISTERED [None]
  - ORAL DISORDER [None]
  - SPEECH DISORDER [None]
